FAERS Safety Report 15246883 (Version 3)
Quarter: 2018Q4

REPORT INFORMATION
  Report Type: Spontaneous
  Country: US (occurrence: US)
  Receive Date: 20180806
  Receipt Date: 20181002
  Transmission Date: 20190204
  Serious: Yes (Hospitalization, Other)
  Sender: FDA-Public Use
  Company Number: US-BIOGEN-2018BI00616749

PATIENT
  Age: 52 Year
  Sex: Female

DRUGS (1)
  1. TYSABRI [Suspect]
     Active Substance: NATALIZUMAB
     Indication: MULTIPLE SCLEROSIS
     Route: 065
     Dates: start: 20151215, end: 20180501

REACTIONS (12)
  - Hypotension [Unknown]
  - Memory impairment [Unknown]
  - Hair colour changes [Unknown]
  - Hormone level abnormal [Unknown]
  - Type 1 diabetes mellitus [Unknown]
  - Visual impairment [Unknown]
  - Hot flush [Unknown]
  - Pancreatic disorder [Unknown]
  - Diarrhoea [Not Recovered/Not Resolved]
  - Pain [Unknown]
  - Inflammation [Unknown]
  - Gait disturbance [Unknown]

NARRATIVE: CASE EVENT DATE: 201806
